FAERS Safety Report 7931680-1 (Version None)
Quarter: 2011Q4

REPORT INFORMATION
  Report Type: 
  Country: None (occurrence: None)
  Receive Date: 20111121
  Receipt Date: 20111110
  Transmission Date: 20120403
  Serious: Yes (Other)
  Sender: FDA-Public Use
  Company Number: PHHY2011FR099505

PATIENT

DRUGS (1)
  1. CYCLOSPORINE [Suspect]

REACTIONS (5)
  - AMNESIA [None]
  - DIZZINESS [None]
  - TREMOR [None]
  - PARAESTHESIA [None]
  - DYSARTHRIA [None]
